FAERS Safety Report 5333430-4 (Version None)
Quarter: 2007Q2

REPORT INFORMATION
  Report Type: 
  Country: None (occurrence: None)
  Receive Date: 20070522
  Receipt Date: 20070522
  Transmission Date: 20071010
  Serious: Yes (Disabling)
  Sender: FDA-Public Use
  Company Number: None

PATIENT
  Age: 53 Year
  Sex: Female
  Weight: 53.5244 kg

DRUGS (2)
  1. SUDEX 1 TABLET [Suspect]
     Indication: INFLUENZA
     Dosage: 1 TABLET 2 TIMES DAILY/7D BUCCAL
     Route: 002
     Dates: start: 20070417, end: 20070420
  2. AZITHROMYCIN [Suspect]
     Indication: INFLUENZA
     Dosage: 1 CAPLET 1 TIME DAILY/5 DAY BUCCAL
     Route: 002
     Dates: start: 20070417, end: 20070421

REACTIONS (5)
  - BLOOD PRESSURE INCREASED [None]
  - EYE HAEMORRHAGE [None]
  - RETINAL DETACHMENT [None]
  - RETINAL TEAR [None]
  - VITREOUS DETACHMENT [None]
